FAERS Safety Report 19035978 (Version 1)
Quarter: 2021Q1

REPORT INFORMATION
  Report Type: Spontaneous
  Country: NL (occurrence: NL)
  Receive Date: 20210321
  Receipt Date: 20210321
  Transmission Date: 20210420
  Serious: Yes (Death)
  Sender: FDA-Public Use
  Company Number: NL-TEVA-2021-NL-1891855

PATIENT
  Age: 37 Year
  Sex: Male

DRUGS (1)
  1. METHYLFENIDAAT TABLET 5MG / BRAND NAME NOT SPECIFIED [Suspect]
     Active Substance: METHYLPHENIDATE HYDROCHLORIDE
     Indication: ATTENTION DEFICIT HYPERACTIVITY DISORDER
     Dosage: 60 MILLIGRAM DAILY; 3 TABLETS 4 TIMES A DAY,THERAPY END DATE:ASKU
     Dates: start: 2018

REACTIONS (1)
  - Completed suicide [Fatal]

NARRATIVE: CASE EVENT DATE: 20201228
